FAERS Safety Report 16287562 (Version 1)
Quarter: 2019Q2

REPORT INFORMATION
  Report Type: Report from Study
  Country: US (occurrence: US)
  Receive Date: 20190508
  Receipt Date: 20190508
  Transmission Date: 20190711
  Serious: No
  Sender: FDA-Public Use
  Company Number: PHEH2019US019319

PATIENT
  Sex: Male

DRUGS (1)
  1. ENTRESTO [Suspect]
     Active Substance: SACUBITRIL\VALSARTAN
     Indication: CARDIAC FAILURE
     Dosage: (3/4 DOSE OF MEDICATION) (HALF IN THE MORNING, AND WHOLE PILL IN THE EVENING)
     Route: 048

REACTIONS (3)
  - Dizziness [Unknown]
  - Wrong technique in product usage process [Unknown]
  - Product prescribing error [Unknown]
